FAERS Safety Report 20002078 (Version 1)
Quarter: 2021Q4

REPORT INFORMATION
  Report Type: Spontaneous
  Country: US (occurrence: US)
  Receive Date: 20211027
  Receipt Date: 20211027
  Transmission Date: 20220303
  Serious: No
  Sender: FDA-Public Use
  Company Number: US-PFIZER INC-2021391523

PATIENT
  Age: 90 Year
  Sex: Male

DRUGS (1)
  1. ALPRAZOLAM [Suspect]
     Active Substance: ALPRAZOLAM
     Dosage: UNK (TAKES 3/4TH PILL)

REACTIONS (6)
  - Nightmare [Unknown]
  - Palpitations [Unknown]
  - Fear [Unknown]
  - Cardiac discomfort [Unknown]
  - Abnormal dreams [Unknown]
  - Wrong technique in product usage process [Unknown]
